FAERS Safety Report 11241619 (Version 2)
Quarter: 2016Q4

REPORT INFORMATION
  Report Type: Spontaneous
  Country: US (occurrence: US)
  Receive Date: 20150706
  Receipt Date: 20161104
  Transmission Date: 20170206
  Serious: Yes (Other)
  Sender: FDA-Public Use
  Company Number: US-ASTRAZENECA-2015SE62745

PATIENT
  Age: 54 Year
  Sex: Male
  Weight: 112.5 kg

DRUGS (13)
  1. COMBIVENT [Concomitant]
     Active Substance: ALBUTEROL SULFATE\IPRATROPIUM BROMIDE
     Dosage: 20 MCG/ 100 MCG PER ACTIVATION FOUR TIMES A DAY
     Route: 055
  2. SYMBICORT [Suspect]
     Active Substance: BUDESONIDE\FORMOTEROL FUMARATE DIHYDRATE
     Indication: CHEST PAIN
     Dosage: 160/4.5 MCG FOR 2 PUFFS TWICE DAILY
     Route: 055
     Dates: start: 2014
  3. SYMBICORT [Suspect]
     Active Substance: BUDESONIDE\FORMOTEROL FUMARATE DIHYDRATE
     Indication: ASTHMA EXERCISE INDUCED
     Dosage: 160/4.5 MCG FOR 2 PUFFS TWICE DAILY
     Route: 055
     Dates: start: 2014
  4. ATORVASTATIN [Concomitant]
     Active Substance: ATORVASTATIN
     Indication: CHEST PAIN
  5. CETIRIVINE HCL [Concomitant]
     Dosage: 10.0MG UNKNOWN
     Route: 048
  6. CSEA SOFT NASAL MIST [Concomitant]
     Dosage: MIST ONE SPRAY IN EACH NOSTRIL TWICE A DAY
     Route: 045
  7. AMLODIPINE BESYLATE. [Concomitant]
     Active Substance: AMLODIPINE BESYLATE
     Indication: CHEST PAIN
     Route: 048
     Dates: start: 2015
  8. SODIUM CHLORIDE. [Concomitant]
     Active Substance: SODIUM CHLORIDE
     Route: 045
  9. RESCUE INHALER [Concomitant]
  10. CYCLOBENZAPRIME [Concomitant]
     Indication: MUSCLE SPASMS
     Dosage: UNKNOWN
     Route: 048
  11. ASPRIRIN [Concomitant]
     Dosage: 81.0MG UNKNOWN
     Route: 048
  12. ISOSOBRIDE [Concomitant]
     Indication: CHEST PAIN
     Dosage: 30 MG DAILY
  13. LIQUI TEARS [Concomitant]
     Indication: DRY EYE
     Dosage: DAILY
     Route: 047

REACTIONS (6)
  - Myocardial bridging [Not Recovered/Not Resolved]
  - Weight increased [Not Recovered/Not Resolved]
  - Cataract [Not Recovered/Not Resolved]
  - Angina unstable [Not Recovered/Not Resolved]
  - Osteoporosis [Not Recovered/Not Resolved]
  - Asthma [Not Recovered/Not Resolved]

NARRATIVE: CASE EVENT DATE: 2014
